FAERS Safety Report 6354488-X (Version None)
Quarter: 2009Q3

REPORT INFORMATION
  Report Type: 
  Country: None (occurrence: None)
  Receive Date: 20090914
  Receipt Date: 20090819
  Transmission Date: 20100115
  Serious: Yes (Death, Hospitalization)
  Sender: FDA-Public Use
  Company Number: PHHY2009CR11957

PATIENT
  Age: 69 Year
  Sex: Female

DRUGS (4)
  1. ACLASTA [Suspect]
     Indication: OSTEOPOROSIS
     Dosage: 5 MG, UNK
     Dates: start: 20070901
  2. CALCIUM [Concomitant]
  3. INSULIN [Concomitant]
     Dosage: 20-30 U SC IN THE MORNING AND 5 U SC IN THE EVENT
     Route: 058
  4. APROVEL [Concomitant]

REACTIONS (11)
  - CARDIAC FAILURE [None]
  - DIABETIC NEUROPATHY [None]
  - EXTREMITY NECROSIS [None]
  - INFARCTION [None]
  - INFECTION [None]
  - INJURY [None]
  - LEG AMPUTATION [None]
  - MUSCULAR WEAKNESS [None]
  - PAIN IN EXTREMITY [None]
  - PERIPHERAL VASCULAR DISORDER [None]
  - RENAL FAILURE [None]
